FAERS Safety Report 4796484-X (Version None)
Quarter: 2005Q4

REPORT INFORMATION
  Report Type: 
  Country: None (occurrence: None)
  Receive Date: 20051006
  Receipt Date: 20051006
  Transmission Date: 20060501
  Serious: Yes (Life-Threatening)
  Sender: FDA-Public Use
  Company Number: None

PATIENT
  Age: 63 Year
  Sex: Female
  Weight: 76 kg

DRUGS (9)
  1. BASAL GLARGINE INSULIN [Suspect]
     Indication: HYPERGLYCAEMIA
     Dosage: 22 UNITS SQ QD
     Route: 058
  2. ACYCLOVIR [Concomitant]
  3. CALCIUM CARBONATE [Concomitant]
  4. LANZOPRAZOLE [Concomitant]
  5. MAGNESIUM SULFATE [Concomitant]
  6. MMF [Concomitant]
  7. PHENYTOIN [Concomitant]
  8. CY A [Concomitant]
  9. SIROLIMUS [Concomitant]

REACTIONS (2)
  - CONFUSIONAL STATE [None]
  - HYPOGLYCAEMIA [None]
